FAERS Safety Report 7043710-2 (Version None)
Quarter: 2010Q4

REPORT INFORMATION
  Report Type: 
  Country: None (occurrence: None)
  Receive Date: 20101013
  Receipt Date: 20100930
  Transmission Date: 20110411
  Serious: Yes (Other)
  Sender: FDA-Public Use
  Company Number: DE-WATSON-2010-13219

PATIENT
  Age: 14 Year
  Sex: Male

DRUGS (6)
  1. PREDNISOLONE [Suspect]
     Indication: JUVENILE ARTHRITIS
     Dosage: UNK
  2. CYCLOPHOSPHAMIDE [Suspect]
     Indication: JUVENILE ARTHRITIS
     Dosage: UNK
  3. AZATHIOPRINE [Suspect]
     Indication: JUVENILE ARTHRITIS
     Dosage: UNK
  4. ADALIMUMAB [Suspect]
     Indication: JUVENILE ARTHRITIS
     Dosage: UNK
  5. ETANERCEPT [Suspect]
     Indication: JUVENILE ARTHRITIS
     Dosage: UNK
  6. METHOTREXATE [Suspect]
     Indication: JUVENILE ARTHRITIS
     Dosage: UNK

REACTIONS (1)
  - NON-HODGKIN'S LYMPHOMA [None]
